FAERS Safety Report 5663740-2 (Version None)
Quarter: 2008Q1

REPORT INFORMATION
  Report Type: 
  Country: None (occurrence: None)
  Receive Date: 20080311
  Receipt Date: 20080226
  Transmission Date: 20080703
  Serious: Yes (Death)
  Sender: FDA-Public Use
  Company Number: 1-15827130

PATIENT
  Age: 18 Year
  Sex: Male
  Weight: 89.8122 kg

DRUGS (8)
  1. FENTANYL [Suspect]
     Dosage: 50 MCG/HR, X 1 PATCH, TRANSDERMAL
     Route: 062
     Dates: start: 20080125, end: 20080126
  2. VICODIN (ACETAMINOPHEN AND HYDROCODONE) [Concomitant]
  3. PHENERGAN [Concomitant]
  4. ZOFRAN (ONDANSETRON HYDROCHLOLRIDE) [Concomitant]
  5. ALDURAZYME (LARONIDASE) [Concomitant]
  6. BENADRYL [Concomitant]
  7. ALDURAZYME (LARONIDASE) INFUSION [Concomitant]
  8. ADVIL [Concomitant]

REACTIONS (2)
  - ACCIDENTAL OVERDOSE [None]
  - SELF-MEDICATION [None]
